FAERS Safety Report 18089497 (Version 1)
Quarter: 2020Q3

REPORT INFORMATION
  Report Type: Other
  Country: CN (occurrence: CN)
  Receive Date: 20200730
  Receipt Date: 20200730
  Transmission Date: 20201103
  Serious: Yes (Hospitalization, Other)
  Sender: FDA-Public Use
  Company Number: CN-ASTELLAS-2020US025182

PATIENT
  Age: 46 Year
  Sex: Male
  Weight: 61 kg

DRUGS (2)
  1. HARNAL [Suspect]
     Active Substance: TAMSULOSIN HYDROCHLORIDE
     Indication: PROSTATITIS
     Dosage: 0.2 MG, ONE TIME EVERY DAY
     Route: 048
     Dates: start: 20200721, end: 20200722
  2. VESICARE [Suspect]
     Active Substance: SOLIFENACIN SUCCINATE
     Indication: PROSTATITIS
     Dosage: 5 MG, ONE TIME EVERY DAY
     Route: 048
     Dates: start: 20200721, end: 20200722

REACTIONS (3)
  - Dizziness [Recovered/Resolved]
  - Transient global amnesia [Recovered/Resolved]
  - Loss of consciousness [Recovered/Resolved]

NARRATIVE: CASE EVENT DATE: 20200722
